FAERS Safety Report 7911244-6 (Version None)
Quarter: 2011Q4

REPORT INFORMATION
  Report Type: 
  Country: None (occurrence: None)
  Receive Date: 20111108
  Receipt Date: 20111028
  Transmission Date: 20120403
  Serious: Yes (Life-Threatening, Hospitalization, Other)
  Sender: FDA-Public Use
  Company Number: 2011SP051427

PATIENT
  Age: 84 Year
  Sex: Female

DRUGS (3)
  1. LASIX [Concomitant]
  2. K-DUR (20 MEQ) [Suspect]
     Indication: BLOOD POTASSIUM DECREASED
     Dosage: 4 DF; ONCE; PO
     Route: 048
     Dates: start: 20111020
  3. POTASSIUM CHLORIDE [Suspect]
     Indication: PRODUCT USED FOR UNKNOWN INDICATION
     Dosage: 40 MEQ;ONCE;PO
     Route: 048
     Dates: start: 20111020

REACTIONS (3)
  - PRODUCT TASTE ABNORMAL [None]
  - HEART RATE DECREASED [None]
  - BLOOD POTASSIUM INCREASED [None]
